FAERS Safety Report 10060689 (Version 1)
Quarter: 2014Q2

REPORT INFORMATION
  Report Type: Spontaneous
  Country: JP (occurrence: JP)
  Receive Date: 20140404
  Receipt Date: 20140404
  Transmission Date: 20141212
  Serious: Yes (Other)
  Sender: FDA-Public Use
  Company Number: JP-ALLERGAN-1406290US

PATIENT
  Age: 76 Year
  Sex: Male

DRUGS (1)
  1. FLUOROMETHOLONE 0.1% EYEDROPS [Suspect]
     Indication: POSTOPERATIVE CARE
     Route: 047

REACTIONS (4)
  - Aggression [Recovering/Resolving]
  - Emotional disorder [Recovering/Resolving]
  - Psychomotor hyperactivity [Recovering/Resolving]
  - Mania [Recovering/Resolving]
